FAERS Safety Report 7994582-0 (Version None)
Quarter: 2011Q4

REPORT INFORMATION
  Report Type: 
  Country: None (occurrence: None)
  Receive Date: 20111220
  Receipt Date: 20111216
  Transmission Date: 20120403
  Serious: Yes (Life-Threatening, Hospitalization)
  Sender: FDA-Public Use
  Company Number: GB-PFIZER INC-2011307366

PATIENT
  Age: 68 Year
  Sex: Male

DRUGS (9)
  1. PRAVASTATIN [Concomitant]
  2. TRAMADOL [Concomitant]
  3. DIAETYLSTILBOESTROL [Suspect]
     Dosage: 1 MG, 1X/DAY
     Route: 048
     Dates: start: 20110601
  4. BISOPROLOL [Concomitant]
  5. ASPIRIN [Concomitant]
  6. LANSOPRAZOLE [Concomitant]
  7. RAMIPRIL [Concomitant]
  8. AMLODIPINE BESYLATE [Suspect]
     Indication: HYPERTENSION
     Dosage: 5 MG, 1X/DAY
     Route: 048
     Dates: start: 20111114
  9. OMACOR [Concomitant]

REACTIONS (4)
  - MYALGIA [None]
  - BACK PAIN [None]
  - PAIN IN EXTREMITY [None]
  - EMBOLISM [None]
